FAERS Safety Report 24791093 (Version 2)
Quarter: 2025Q1

REPORT INFORMATION
  Report Type: Report from Study
  Country: IL (occurrence: IL)
  Receive Date: 20241230
  Receipt Date: 20250205
  Transmission Date: 20250409
  Serious: No
  Sender: JOHNSON AND JOHNSON
  Company Number: IL-JNJFOC-20241224958

PATIENT
  Age: 73 Year
  Sex: Female

DRUGS (1)
  1. SIMPONI [Suspect]
     Active Substance: GOLIMUMAB
     Indication: Rheumatoid arthritis
     Dosage: STRENGTH: 50.00 MG / 0.50 ML
     Route: 058

REACTIONS (2)
  - Device issue [Unknown]
  - Product dose omission issue [Unknown]

NARRATIVE: CASE EVENT DATE: 20241203
